FAERS Safety Report 4541382-X (Version None)
Quarter: 2004Q4

REPORT INFORMATION
  Report Type: 
  Country: None (occurrence: None)
  Receive Date: 20041229
  Receipt Date: 20041207
  Transmission Date: 20050328
  Serious: Yes (Death)
  Sender: FDA-Public Use
  Company Number: AU-MERCK-0412AUS00046

PATIENT

DRUGS (2)
  1. VIOXX [Suspect]
     Indication: ARTHRALGIA
  2. ESOMEPRAZOLE MAGNESIUM [Concomitant]

REACTIONS (2)
  - ABORTION INDUCED [None]
  - DRUG EXPOSURE DURING PREGNANCY [None]
